FAERS Safety Report 5238567-6 (Version None)
Quarter: 2007Q1

REPORT INFORMATION
  Report Type: 
  Country: None (occurrence: None)
  Receive Date: 20070215
  Receipt Date: 20070206
  Transmission Date: 20070707
  Serious: Yes (Hospitalization)
  Sender: FDA-Public Use
  Company Number: 2007AP00825

PATIENT
  Age: 867 Month
  Sex: Female
  Weight: 52 kg

DRUGS (15)
  1. ARIMIDEX [Suspect]
     Indication: BREAST CANCER
     Route: 048
     Dates: start: 20061113, end: 20061211
  2. GRAMALIL [Concomitant]
     Indication: CEREBRAL ARTERIOSCLEROSIS
     Route: 048
     Dates: start: 20050411, end: 20061211
  3. AMOBAN [Concomitant]
     Indication: INSOMNIA
     Route: 048
     Dates: start: 20050411, end: 20061211
  4. TEGRETOL [Concomitant]
     Indication: TRIGEMINAL NEURALGIA
     Route: 048
     Dates: start: 20060417, end: 20061211
  5. LOXONIN [Concomitant]
     Indication: PAIN
     Route: 048
     Dates: start: 20060429, end: 20061211
  6. GASTER D [Concomitant]
     Indication: GASTRITIS
     Route: 048
     Dates: start: 20060429, end: 20061211
  7. MEVALOTIN [Concomitant]
  8. TAXOL [Concomitant]
     Dosage: 5 COURSES
     Dates: start: 20050601, end: 20051101
  9. ADRIAMYCIN PFS [Concomitant]
     Dates: start: 20051201, end: 20061011
  10. FARMORUBICIN [Concomitant]
     Dates: start: 20051201, end: 20061011
  11. FLUOROURACIL [Concomitant]
  12. CYCLOPHOSPHAMIDE [Concomitant]
  13. ENDOXAN [Concomitant]
     Dosage: ADMINISTERED 11 TIMES
     Dates: start: 20051201, end: 20061011
  14. AREDIA [Concomitant]
     Dosage: ADMINISTERED 12 TIMES
     Dates: start: 20050501, end: 20060501
  15. ZOMETA [Concomitant]
     Dosage: ADMINISTERED 7 TIMES
     Dates: start: 20060501, end: 20061101

REACTIONS (5)
  - FLUID RETENTION [None]
  - METASTASES TO LUNG [None]
  - PNEUMONIA [None]
  - PYOMETRA [None]
  - UTERINE NEOPLASM [None]
